FAERS Safety Report 5460699-8 (Version None)
Quarter: 2007Q3

REPORT INFORMATION
  Report Type: 
  Country: None (occurrence: None)
  Receive Date: 20070918
  Receipt Date: 20070903
  Transmission Date: 20080115
  Serious: Yes (Hospitalization)
  Sender: FDA-Public Use
  Company Number: 060006L07JPN

PATIENT
  Age: 29 Year
  Sex: Female

DRUGS (2)
  1. FERTINORM P(MENOTROPHIN) [Suspect]
     Indication: IN VITRO FERTILISATION
  2. CLOMID [Suspect]
     Indication: IN VITRO FERTILISATION

REACTIONS (4)
  - CAESAREAN SECTION [None]
  - DRUG EXPOSURE BEFORE PREGNANCY [None]
  - PLACENTAL TRANSFUSION SYNDROME [None]
  - TWIN PREGNANCY [None]
